FAERS Safety Report 5245779-4 (Version None)
Quarter: 2007Q1

REPORT INFORMATION
  Report Type: 
  Country: None (occurrence: None)
  Receive Date: 20070223
  Receipt Date: 20070214
  Transmission Date: 20070707
  Serious: Yes (Other)
  Sender: FDA-Public Use
  Company Number: US-PFIZER INC-2007013043

PATIENT
  Sex: Male
  Weight: 90.7 kg

DRUGS (1)
  1. NEURONTIN [Suspect]
     Indication: DIABETIC NEUROPATHY
     Dates: start: 20050101, end: 20050101

REACTIONS (3)
  - BURNING SENSATION [None]
  - DYSSTASIA [None]
  - PAIN [None]
